FAERS Safety Report 10195751 (Version 2)
Quarter: 2014Q2

REPORT INFORMATION
  Report Type: Report from Study
  Country: FR (occurrence: FR)
  Receive Date: 20140527
  Receipt Date: 20140528
  Transmission Date: 20141212
  Serious: Yes (Hospitalization)
  Sender: FDA-Public Use
  Company Number: FR-ROCHE-1403016

PATIENT
  Age: 56 Year
  Sex: Female
  Weight: 56 kg

DRUGS (4)
  1. TOCILIZUMAB [Suspect]
     Indication: RHEUMATOID ARTHRITIS
     Dosage: 450MG SECOND INFUSION OF TOCILIZUMAB : 4MG/KG (450MG).
     Route: 042
     Dates: start: 20140221
  2. TOCILIZUMAB [Suspect]
     Dosage: 450MG SECOND INFUSION OF TOCILIZUMAB : 4MG/KG (450MG).
     Route: 042
     Dates: start: 20140321, end: 20140321
  3. PREDNISONE [Concomitant]
     Indication: RHEUMATOID ARTHRITIS
     Route: 048
     Dates: start: 2013, end: 201304
  4. INEXIUM [Concomitant]
     Indication: PROPHYLAXIS
     Route: 048
     Dates: start: 2013, end: 201304

REACTIONS (4)
  - Vertigo [Not Recovered/Not Resolved]
  - Headache [Not Recovered/Not Resolved]
  - Vision blurred [Not Recovered/Not Resolved]
  - Asthenia [Not Recovered/Not Resolved]
